FAERS Safety Report 13901559 (Version 2)
Quarter: 2017Q4

REPORT INFORMATION
  Report Type: Spontaneous
  Country: CH (occurrence: CH)
  Receive Date: 20170824
  Receipt Date: 20171026
  Transmission Date: 20180320
  Serious: Yes (Other)
  Sender: FDA-Public Use
  Company Number: CH-AMGEN-CHESP2017126213

PATIENT
  Age: 58 Year
  Sex: Male

DRUGS (8)
  1. SUPRADYN [Concomitant]
     Active Substance: ASCORBIC ACID\MINERALS\VITAMINS
     Dosage: UNK UNK, AS NECESSARY
  2. LESCOL [Concomitant]
     Active Substance: FLUVASTATIN SODIUM
     Dosage: UNK
     Dates: end: 20170901
  3. EZETROL [Concomitant]
     Active Substance: EZETIMIBE
     Dosage: UNK
     Dates: end: 20170901
  4. REPATHA [Suspect]
     Active Substance: EVOLOCUMAB
     Indication: PRODUCT USED FOR UNKNOWN INDICATION
     Dosage: UNK
     Route: 058
  5. ALLOPUR [Concomitant]
     Active Substance: ALLOPURINOL
     Dosage: UNK UNK, QD (IN MORNING)
  6. PLAVIX [Concomitant]
     Active Substance: CLOPIDOGREL BISULFATE
     Dosage: 75 MG, QD (IN MORNING)
  7. CIALIS [Concomitant]
     Active Substance: TADALAFIL
  8. NEXIUM [Concomitant]
     Active Substance: ESOMEPRAZOLE MAGNESIUM
     Dosage: 40 MG, UNK

REACTIONS (3)
  - Food allergy [Unknown]
  - Dysphagia [Recovered/Resolved]
  - Respiratory distress [Unknown]
